FAERS Safety Report 8781015 (Version 2)
Quarter: 2014Q3

REPORT INFORMATION
  Report Type: Report from Study
  Country: US (occurrence: US)
  Receive Date: 20120913
  Receipt Date: 20140821
  Transmission Date: 20150326
  Serious: Yes (Death, Other)
  Sender: FDA-Public Use
  Company Number: US-ROCHE-1113209

PATIENT
  Sex: Female
  Weight: 54 kg

DRUGS (9)
  1. AVASTIN [Suspect]
     Active Substance: BEVACIZUMAB
     Indication: MALIGNANT RESPIRATORY TRACT NEOPLASM
     Route: 065
     Dates: start: 20051117
  2. AVASTIN [Suspect]
     Active Substance: BEVACIZUMAB
     Indication: NON-SMALL CELL LUNG CANCER
     Route: 065
     Dates: start: 20051205
  3. TARCEVA [Suspect]
     Active Substance: ERLOTINIB HYDROCHLORIDE
     Indication: NON-SMALL CELL LUNG CANCER
  4. AVASTIN [Suspect]
     Active Substance: BEVACIZUMAB
     Route: 065
     Dates: start: 20060119
  5. CARBOPLATIN. [Concomitant]
     Active Substance: CARBOPLATIN
  6. AVASTIN [Suspect]
     Active Substance: BEVACIZUMAB
     Route: 065
     Dates: start: 20060209
  7. AVASTIN [Suspect]
     Active Substance: BEVACIZUMAB
     Route: 042
  8. TARCEVA [Suspect]
     Active Substance: ERLOTINIB HYDROCHLORIDE
     Indication: MALIGNANT RESPIRATORY TRACT NEOPLASM
     Route: 065
  9. TAXOL [Concomitant]
     Active Substance: PACLITAXEL

REACTIONS (12)
  - Death [Fatal]
  - Carcinoembryonic antigen increased [Unknown]
  - Lymphadenopathy [Unknown]
  - Metastasis [Unknown]
  - Herpes zoster [Unknown]
  - Asthenia [Unknown]
  - Dysphagia [Unknown]
  - Cough [Unknown]
  - Off label use [Unknown]
  - Dyspnoea [Unknown]
  - Constipation [Unknown]
  - Abdominal discomfort [Unknown]
